FAERS Safety Report 15395910 (Version 1)
Quarter: 2018Q3

REPORT INFORMATION
  Report Type: Spontaneous
  Country: US (occurrence: US)
  Receive Date: 20180912
  Receipt Date: 20180912
  Transmission Date: 20181010
  Serious: Yes (Hospitalization, Disabling)
  Sender: FDA-Public Use
  Company Number: None

PATIENT
  Age: 47 Year
  Sex: Male
  Weight: 85.5 kg

DRUGS (1)
  1. NERALABINE [Suspect]
     Active Substance: NELARABINE
     Indication: LEUKAEMIA RECURRENT

REACTIONS (5)
  - Condition aggravated [None]
  - Paraesthesia [None]
  - Hypoaesthesia [None]
  - Asthenia [None]
  - Ataxia [None]

NARRATIVE: CASE EVENT DATE: 20180906
